FAERS Safety Report 7019714-2 (Version None)
Quarter: 2010Q3

REPORT INFORMATION
  Report Type: 
  Country: None (occurrence: None)
  Receive Date: 20100929
  Receipt Date: 20100919
  Transmission Date: 20110219
  Serious: Yes (Death, Hospitalization, Other)
  Sender: FDA-Public Use
  Company Number: DE-PAR PHARMACEUTICAL, INC-2010SCPR002095

PATIENT
  Age: 76 Year
  Sex: Female

DRUGS (7)
  1. IBUPROFEN [Suspect]
     Indication: PRODUCT USED FOR UNKNOWN INDICATION
     Dosage: 300 MG, EVERY FOURTH DAY
     Route: 048
     Dates: start: 20070101, end: 20100405
  2. CIPROFLOXACIN HCL [Suspect]
     Indication: DIVERTICULITIS
     Dosage: 1000 MG, QD
     Route: 048
     Dates: start: 20100416, end: 20100419
  3. DICLAC                             /00372302/ [Suspect]
     Indication: PRODUCT USED FOR UNKNOWN INDICATION
     Dosage: UNK
     Route: 048
     Dates: start: 20100222, end: 20100419
  4. ATACAND HCT [Suspect]
     Indication: HYPERTENSION
     Dosage: 1 DF (16MG / 12.5 MG), QD
     Route: 048
     Dates: start: 20000101, end: 20100419
  5. ATACAND [Suspect]
     Indication: HYPERTENSION
     Dosage: 16 MG, QD
     Route: 048
     Dates: start: 20091101, end: 20100419
  6. SALOFALK                           /00747601/ [Suspect]
     Indication: DIVERTICULITIS
     Dosage: 1 DF (2G / 30ML), QD
     Route: 054
     Dates: start: 20100326, end: 20100415
  7. MESALAZINE [Suspect]
     Indication: COLITIS
     Dosage: UNK
     Route: 048
     Dates: start: 20100317, end: 20100325

REACTIONS (5)
  - COLITIS [None]
  - DEATH [None]
  - MULTI-ORGAN FAILURE [None]
  - RENAL FAILURE ACUTE [None]
  - SEPTIC SHOCK [None]
